FAERS Safety Report 14054336 (Version 1)
Quarter: 2017Q4

REPORT INFORMATION
  Report Type: Spontaneous
  Country: US (occurrence: US)
  Receive Date: 20171006
  Receipt Date: 20171006
  Transmission Date: 20180321
  Serious: No
  Sender: FDA-Public Use
  Company Number: US-JNJFOC-20170912764

PATIENT
  Age: 70 Year
  Sex: Female
  Weight: 63.5 kg

DRUGS (2)
  1. WOMENS ROGAINE UNSCENTED [Suspect]
     Active Substance: MINOXIDIL
     Indication: ALOPECIA
     Dosage: ONCE 1/8TH
     Route: 061
     Dates: start: 20170829, end: 20170829
  2. WOMENS ROGAINE UNSCENTED [Suspect]
     Active Substance: MINOXIDIL
     Route: 061

REACTIONS (3)
  - Underdose [Unknown]
  - Flushing [Recovering/Resolving]
  - Erythema [Recovering/Resolving]

NARRATIVE: CASE EVENT DATE: 20170829
